FAERS Safety Report 16629321 (Version 1)
Quarter: 2019Q3

REPORT INFORMATION
  Report Type: Spontaneous
  Country: CZ (occurrence: CZ)
  Receive Date: 20190725
  Receipt Date: 20190725
  Transmission Date: 20191004
  Serious: Yes (Life-Threatening, Hospitalization, Other)
  Sender: FDA-Public Use
  Company Number: CZ-APOTEX-2019AP018842

PATIENT
  Sex: Female

DRUGS (3)
  1. OXAZEPAM. [Suspect]
     Active Substance: OXAZEPAM
     Indication: DELUSIONAL DISORDER, UNSPECIFIED TYPE
     Dosage: 15 MG, UNK
     Route: 065
  2. OLANZAPINE. [Suspect]
     Active Substance: OLANZAPINE
     Indication: DELUSIONAL DISORDER, UNSPECIFIED TYPE
     Dosage: 20 MG, DAILY
     Route: 065
  3. CITALOPRAM [Suspect]
     Active Substance: CITALOPRAM HYDROBROMIDE
     Indication: DELUSIONAL DISORDER, UNSPECIFIED TYPE
     Dosage: 40 MG, UNK
     Route: 065

REACTIONS (2)
  - Weight increased [Unknown]
  - Deep vein thrombosis [Unknown]
